FAERS Safety Report 5626965-8 (Version None)
Quarter: 2008Q1

REPORT INFORMATION
  Report Type: 
  Country: None (occurrence: None)
  Receive Date: 20080212
  Receipt Date: 20080130
  Transmission Date: 20080703
  Serious: Yes (Death)
  Sender: FDA-Public Use
  Company Number: 2008003152

PATIENT
  Age: 49 Year
  Sex: Male

DRUGS (4)
  1. PSEUDOEPHEDRINE HCL [Suspect]
     Indication: INFLUENZA
     Dosage: ORAL
     Route: 048
  2. GUAIFENESIN [Suspect]
     Indication: INFLUENZA
     Dosage: ORAL
     Route: 048
  3. DEXROMETHORPHAN UNSPECIFIED (DEXTROMETHORPHAN) [Suspect]
     Indication: INFLUENZA
     Dosage: ORAL
     Route: 048
  4. EPHEDRINE SUL CAP [Suspect]
     Indication: INFLUENZA
     Dosage: ORAL
     Route: 048

REACTIONS (5)
  - BACK PAIN [None]
  - CARDIAC DISORDER [None]
  - DRUG TOXICITY [None]
  - DYSPNOEA [None]
  - RESPIRATORY DISORDER [None]
